FAERS Safety Report 9303607 (Version 4)
Quarter: 2013Q4

REPORT INFORMATION
  Report Type: Spontaneous
  Country: JP (occurrence: JP)
  Receive Date: 20130522
  Receipt Date: 20131211
  Transmission Date: 20140711
  Serious: Yes (Hospitalization, Other)
  Sender: FDA-Public Use
  Company Number: JP-PFIZER INC-2013150033

PATIENT
  Age: 67 Year
  Sex: Male

DRUGS (2)
  1. CHAMPIX [Suspect]
     Indication: SMOKING CESSATION THERAPY
     Dosage: 1 MG, AS NEEDED
     Route: 048
     Dates: start: 20121001, end: 201304
  2. NICORETTE FRUIT GUM [Suspect]
     Indication: SMOKING CESSATION THERAPY
     Dosage: 1 DF, 2 TO 3 TIMES A DAY
     Route: 048
     Dates: start: 20121022

REACTIONS (3)
  - Status epilepticus [Recovered/Resolved]
  - Renal impairment [Unknown]
  - Sleep apnoea syndrome [Unknown]
